FAERS Safety Report 7825684-7 (Version None)
Quarter: 2011Q4

REPORT INFORMATION
  Report Type: 
  Country: None (occurrence: None)
  Receive Date: 20111017
  Receipt Date: 20110928
  Transmission Date: 20120403
  Serious: Yes (Hospitalization)
  Sender: FDA-Public Use
  Company Number: 2011PROUSA00587

PATIENT
  Age: 69 Year
  Sex: Male

DRUGS (1)
  1. PROVENGE [Suspect]
     Indication: PROSTATE CANCER METASTATIC
     Dosage: 250 ML, SINGLE, INTRAVENOUS
     Route: 042
     Dates: start: 20110701, end: 20110701

REACTIONS (5)
  - INCOHERENT [None]
  - CHILLS [None]
  - MALAISE [None]
  - PRODUCT CONTAMINATION MICROBIAL [None]
  - BLOOD PRESSURE DECREASED [None]
